FAERS Safety Report 11176273 (Version 2)
Quarter: 2015Q3

REPORT INFORMATION
  Report Type: Report from Study
  Country: GB (occurrence: GB)
  Receive Date: 20150609
  Receipt Date: 20150707
  Transmission Date: 20151125
  Serious: Yes (Other)
  Sender: FDA-Public Use
  Company Number: PHHO2015GB009875

PATIENT
  Age: 34 Year
  Sex: Female
  Weight: 93.6 kg

DRUGS (1)
  1. AIN457 [Suspect]
     Active Substance: SECUKINUMAB
     Indication: PSORIASIS
     Dosage: UNK
     Dates: start: 20140627, end: 20150529

REACTIONS (1)
  - Fibroadenoma of breast [Not Recovered/Not Resolved]

NARRATIVE: CASE EVENT DATE: 20150529
